FAERS Safety Report 4479679-4 (Version None)
Quarter: 2004Q4

REPORT INFORMATION
  Report Type: 
  Country: None (occurrence: None)
  Receive Date: 20041020
  Receipt Date: 20040922
  Transmission Date: 20050328
  Serious: Yes (Hospitalization)
  Sender: FDA-Public Use
  Company Number: JP-GLAXOSMITHKLINE-B0346365A

PATIENT
  Age: 87 Year
  Sex: Female
  Weight: 40 kg

DRUGS (4)
  1. PAXIL [Suspect]
     Indication: DEPRESSION
     Dosage: 10MG TWICE PER DAY
     Route: 048
     Dates: start: 20040901
  2. BAYASPIRIN [Concomitant]
     Indication: ATRIAL FIBRILLATION
     Dosage: 100MG PER DAY
     Route: 048
     Dates: start: 19990221
  3. DIGOXIN [Concomitant]
     Indication: ATRIAL FIBRILLATION
     Dosage: .125MG PER DAY
     Route: 048
     Dates: start: 19990221
  4. SUNRYTHM [Concomitant]
     Indication: ATRIAL FIBRILLATION
     Dosage: 100MG PER DAY
     Route: 065
     Dates: start: 19990221, end: 19990601

REACTIONS (3)
  - DEPRESSED LEVEL OF CONSCIOUSNESS [None]
  - DRY MOUTH [None]
  - HYPONATRAEMIA [None]
